FAERS Safety Report 23559489 (Version 2)
Quarter: 2024Q1

REPORT INFORMATION
  Report Type: Spontaneous
  Country: BR (occurrence: BR)
  Receive Date: 20240223
  Receipt Date: 20240308
  Transmission Date: 20240410
  Serious: Yes (Other)
  Sender: FDA-Public Use
  Company Number: BR-009507513-2402BRA007482

PATIENT
  Age: 86 Year
  Sex: Female

DRUGS (1)
  1. PEMBROLIZUMAB [Suspect]
     Active Substance: PEMBROLIZUMAB
     Indication: Lung squamous cell carcinoma stage IV
     Dosage: UNK
     Dates: start: 202103, end: 2021

REACTIONS (8)
  - Pulmonary embolism [Unknown]
  - Hypothyroidism [Unknown]
  - COVID-19 [Unknown]
  - Emphysema [Unknown]
  - Pruritus [Unknown]
  - Constipation [Unknown]
  - Rash [Unknown]
  - Therapy partial responder [Recovered/Resolved]

NARRATIVE: CASE EVENT DATE: 20210101
